FAERS Safety Report 17911852 (Version 6)
Quarter: 2020Q2

REPORT INFORMATION
  Report Type: Spontaneous
  Country: FR (occurrence: FR)
  Receive Date: 20200618
  Receipt Date: 20200624
  Transmission Date: 20200714
  Serious: Yes (Death, Life-Threatening, Hospitalization, Other)
  Sender: FDA-Public Use
  Company Number: FR-PFIZER INC-2020230452

PATIENT
  Age: 93 Year
  Sex: Male

DRUGS (8)
  1. NOREPINEPHRINE BITARTRATE. [Suspect]
     Active Substance: NOREPINEPHRINE BITARTRATE
     Indication: SHOCK
     Dosage: UP TO 30 MG/HOUR; CONTINUOUS INFUSION
     Route: 050
  2. CALCIUM CHLORIDE. [Suspect]
     Active Substance: CALCIUM CHLORIDE
     Indication: SHOCK
     Dosage: UNK
     Route: 065
  3. INSULIN [Suspect]
     Active Substance: INSULIN NOS
     Indication: SHOCK
     Dosage: UNK
     Route: 065
  4. METHYLENE BLUE. [Suspect]
     Active Substance: METHYLENE BLUE
     Indication: SHOCK
     Dosage: UNK
     Route: 065
  5. DOBUTAMINE [Suspect]
     Active Substance: DOBUTAMINE HYDROCHLORIDE
     Indication: SHOCK
     Dosage: 20 UG/KG
     Route: 065
  6. FLUINDIONE [Suspect]
     Active Substance: FLUINDIONE
     Indication: HYPERTENSION
     Dosage: 100 MG(5 TABLETS OF 20MG)
     Route: 048
  7. LERCANIDIPINE [Suspect]
     Active Substance: LERCANIDIPINE
     Indication: HYPERTENSION
     Dosage: 30 MG(3 TABLETS OF 10MG)
     Route: 048
  8. COVERAM [Suspect]
     Active Substance: AMLODIPINE\PERINDOPRIL
     Indication: HYPERTENSION
     Dosage: 40 MG, 4 TABLETS OF 10MG
     Route: 048

REACTIONS (18)
  - Hypoalbuminaemia [Unknown]
  - Drug ineffective [Fatal]
  - Hypothermia [Fatal]
  - Pneumonia aspiration [Fatal]
  - Seizure [Fatal]
  - Shock [Fatal]
  - Cardiopulmonary failure [Fatal]
  - Cholestasis [Fatal]
  - Toxicity to various agents [Fatal]
  - Hepatic failure [Fatal]
  - Multiple organ dysfunction syndrome [Fatal]
  - Anaemia [Unknown]
  - Drug level increased [Fatal]
  - Intentional overdose [Fatal]
  - Vasoplegia syndrome [Fatal]
  - Thrombocytopenia [Unknown]
  - Acute respiratory distress syndrome [Fatal]
  - Renal failure [Fatal]
